FAERS Safety Report 5708744-6 (Version None)
Quarter: 2008Q2

REPORT INFORMATION
  Report Type: 
  Country: None (occurrence: None)
  Receive Date: 20080408
  Receipt Date: 20041117
  Transmission Date: 20081010
  Serious: Yes (Death, Hospitalization)
  Sender: FDA-Public Use
  Company Number: WSDF_00425

PATIENT
  Age: 65 Year
  Sex: Male

DRUGS (3)
  1. WINRHO SDF [Suspect]
     Dosage: 1500 IU INCE
     Dates: start: 20040820, end: 20040820
  2. GAMUNEX [Concomitant]
  3. PLATELETS [Concomitant]

REACTIONS (3)
  - ENCEPHALOPATHY [None]
  - HEPATITIS B VIRUS [None]
  - STAPHYLOCOCCAL SEPSIS [None]
